FAERS Safety Report 17536522 (Version 1)
Quarter: 2020Q1

REPORT INFORMATION
  Report Type: Spontaneous
  Country: US (occurrence: US)
  Receive Date: 20200313
  Receipt Date: 20200313
  Transmission Date: 20200409
  Serious: No
  Sender: FDA-Public Use
  Company Number: US-ASTRAZENECA-2020SE35496

PATIENT
  Sex: Male
  Weight: 10.1 kg

DRUGS (1)
  1. SYNAGIS [Suspect]
     Active Substance: PALIVIZUMAB
     Indication: SPINAL MUSCULAR ATROPHY
     Dosage: DOSE UNKNOWN
     Route: 030
     Dates: start: 201910

REACTIONS (3)
  - Viral infection [Unknown]
  - Pyrexia [Unknown]
  - Cough [Unknown]
